FAERS Safety Report 6687950-0 (Version None)
Quarter: 2010Q2

REPORT INFORMATION
  Report Type: 
  Country: None (occurrence: None)
  Receive Date: 20100420
  Receipt Date: 20100412
  Transmission Date: 20101027
  Serious: Yes (Hospitalization)
  Sender: FDA-Public Use
  Company Number: CA-JNJFOC-20041001771

PATIENT
  Sex: Male
  Weight: 99.79 kg

DRUGS (11)
  1. LEVAQUIN [Suspect]
     Indication: SINUSITIS
     Route: 048
     Dates: start: 20040930, end: 20041002
  2. COUMADIN [Concomitant]
     Indication: PORTAL VEIN THROMBOSIS
     Route: 048
  3. PANTOPRAZOLE [Concomitant]
     Indication: PROPHYLAXIS
  4. PLAQUENIL [Concomitant]
     Indication: ARTHRITIS
  5. PREDNISONE [Concomitant]
     Indication: ARTHRITIS
     Route: 048
  6. CELEXA [Concomitant]
     Indication: DEPRESSION
     Route: 048
  7. CRESTOR [Concomitant]
     Route: 048
  8. ACTONEL [Concomitant]
     Indication: OSTEOPOROSIS
     Route: 048
  9. ACTOS [Concomitant]
     Indication: DIABETES MELLITUS
     Route: 048
  10. VITAMIN D [Concomitant]
     Indication: OSTEOPOROSIS
  11. CALCIUM [Concomitant]

REACTIONS (7)
  - ABDOMINAL PAIN UPPER [None]
  - BLOOD AMYLASE INCREASED [None]
  - BLOOD POTASSIUM DECREASED [None]
  - DIARRHOEA [None]
  - LIVER FUNCTION TEST ABNORMAL [None]
  - NAUSEA [None]
  - VOMITING [None]
